FAERS Safety Report 7212540-0 (Version None)
Quarter: 2011Q1

REPORT INFORMATION
  Report Type: 
  Country: None (occurrence: None)
  Receive Date: 20110106
  Receipt Date: 20101228
  Transmission Date: 20110831
  Serious: Yes (Hospitalization, Other)
  Sender: FDA-Public Use
  Company Number: PHHY2009CA57117

PATIENT
  Sex: Female

DRUGS (5)
  1. SANDOSTATIN LAR [Suspect]
     Indication: SHORT-BOWEL SYNDROME
     Dosage: 20 MG, QMO
     Route: 030
     Dates: start: 20091222
  2. SANDOSTATIN [Suspect]
     Dosage: 40 MG,ONCE A MONTH
     Route: 030
     Dates: start: 20091222
  3. SANDOSTATIN LAR [Suspect]
     Dosage: 20 MG, EVERY 4 WEEKS
     Route: 030
  4. SANDOSTATIN [Suspect]
     Indication: SHORT-BOWEL SYNDROME
     Dosage: 20 MG, QMO
     Route: 058
  5. SANDOSTATIN LAR [Suspect]
     Dosage: 40 MG, QMO
     Route: 030

REACTIONS (15)
  - OROPHARYNGEAL PAIN [None]
  - INTESTINAL OPERATION [None]
  - STRESS [None]
  - BLOOD PRESSURE FLUCTUATION [None]
  - DYSURIA [None]
  - CHROMATURIA [None]
  - FEMALE GENITAL TRACT FISTULA [None]
  - COLOSTOMY [None]
  - CYSTITIS [None]
  - STAPHYLOCOCCAL INFECTION [None]
  - URINARY TRACT INFECTION [None]
  - BLOOD PRESSURE INCREASED [None]
  - BLADDER PAIN [None]
  - KIDNEY INFECTION [None]
  - INFECTION [None]
